FAERS Safety Report 12123690 (Version 1)
Quarter: 2016Q1

REPORT INFORMATION
  Report Type: Spontaneous
  Country: US (occurrence: None)
  Receive Date: 20160226
  Receipt Date: 20160226
  Transmission Date: 20160526
  Serious: Yes (Other)
  Sender: FDA-Public Use
  Company Number: None

PATIENT
  Age: 92 Year
  Sex: Male
  Weight: 72.58 kg

DRUGS (7)
  1. OMEPRAZOLE. [Concomitant]
     Active Substance: OMEPRAZOLE
  2. FUROSEMIDE. [Concomitant]
     Active Substance: FUROSEMIDE
  3. ATENOLOL. [Concomitant]
     Active Substance: ATENOLOL
  4. FERROUS SULFATE [Concomitant]
     Active Substance: FERROUS SULFATE\FERROUS SULFATE, DRIED
  5. TAMSULOSIN [Concomitant]
     Active Substance: TAMSULOSIN
  6. CEFUROXIME. [Suspect]
     Active Substance: CEFUROXIME
     Indication: MEDICAL DEVICE SITE JOINT INFECTION
     Dosage: ONE TABLET BID ORAL
     Route: 048
     Dates: start: 20160201, end: 20160210
  7. CITALOPRAM [Concomitant]
     Active Substance: CITALOPRAM HYDROBROMIDE

REACTIONS (5)
  - Myalgia [None]
  - Discomfort [None]
  - Product substitution issue [None]
  - Chills [None]
  - Hyperhidrosis [None]

NARRATIVE: CASE EVENT DATE: 20160201
